FAERS Safety Report 5725193-5 (Version None)
Quarter: 2008Q2

REPORT INFORMATION
  Report Type: 
  Country: None (occurrence: None)
  Receive Date: 20080501
  Receipt Date: 20080429
  Transmission Date: 20081010
  Serious: Yes (Other)
  Sender: FDA-Public Use
  Company Number: A0725365A

PATIENT
  Age: 41 Year
  Sex: Female

DRUGS (7)
  1. LAMICTAL [Suspect]
     Indication: BIPOLAR DISORDER
     Dosage: 100MG PER DAY
     Route: 048
     Dates: start: 20080101
  2. LORAZEPAM [Concomitant]
  3. NEURONTIN [Concomitant]
  4. ZONEGRAN [Concomitant]
  5. OXYCODONE HCL [Concomitant]
     Indication: NEUROPATHY PERIPHERAL
  6. MORPHINE [Concomitant]
     Indication: NEUROPATHY PERIPHERAL
  7. PREDNISOLONE [Concomitant]

REACTIONS (6)
  - ELEVATED MOOD [None]
  - PHOTODERMATOSIS [None]
  - RASH [None]
  - SWELLING FACE [None]
  - SYSTEMIC LUPUS ERYTHEMATOSUS RASH [None]
  - WEIGHT INCREASED [None]
